FAERS Safety Report 7664759-2 (Version None)
Quarter: 2011Q3

REPORT INFORMATION
  Report Type: 
  Country: None (occurrence: None)
  Receive Date: 20110806
  Receipt Date: 20110302
  Transmission Date: 20111222
  Serious: No
  Sender: FDA-Public Use
  Company Number: US-ABBOTT-11P-163-0701208-00

PATIENT
  Age: 61 Year
  Sex: Female

DRUGS (4)
  1. NORVASC [Concomitant]
     Indication: HYPERTENSION
  2. ACCUPRIL [Interacting]
     Indication: HYPERTENSION
  3. NIASPAN [Suspect]
     Indication: PRODUCT USED FOR UNKNOWN INDICATION
     Dates: start: 20101201
  4. METFORMIN HCL [Interacting]
     Indication: PRODUCT USED FOR UNKNOWN INDICATION
     Dates: start: 20090101

REACTIONS (3)
  - SKIN BURNING SENSATION [None]
  - FLUSHING [None]
  - URTICARIA [None]
